FAERS Safety Report 24966451 (Version 5)
Quarter: 2025Q2

REPORT INFORMATION
  Report Type: Report from Study
  Country: US (occurrence: US)
  Receive Date: 20250213
  Receipt Date: 20250630
  Transmission Date: 20250717
  Serious: Yes (Other)
  Sender: TAKEDA
  Company Number: US-TAKEDA-2024TUS108139

PATIENT
  Sex: Female
  Weight: 91 kg

DRUGS (21)
  1. HUMAN IMMUNOGLOBULIN G\HYALURONIDASE RECOMBINANT HUMAN [Suspect]
     Active Substance: HUMAN IMMUNOGLOBULIN G\HYALURONIDASE (HUMAN RECOMBINANT)
     Indication: Rheumatoid arthritis
     Dosage: 40 GRAM, Q4WEEKS
     Dates: start: 20241016
  2. ACETAMINOPHEN [Concomitant]
     Active Substance: ACETAMINOPHEN
  3. EPINEPHRINE [Concomitant]
     Active Substance: EPINEPHRINE
  4. SODIUM CHLORIDE [Concomitant]
     Active Substance: SODIUM CHLORIDE
  5. AMITRIPTYLINE HYDROCHLORIDE [Concomitant]
     Active Substance: AMITRIPTYLINE HYDROCHLORIDE
  6. ENBREL [Concomitant]
     Active Substance: ETANERCEPT
  7. TIZANIDINE HYDROCHLORIDE [Concomitant]
     Active Substance: TIZANIDINE HYDROCHLORIDE
  8. ROSUVASTATIN CALCIUM [Concomitant]
     Active Substance: ROSUVASTATIN CALCIUM
  9. BUPROPION [Concomitant]
     Active Substance: BUPROPION
  10. RISEDRONATE SODIUM [Concomitant]
     Active Substance: RISEDRONATE SODIUM
  11. BENZONATATE [Concomitant]
     Active Substance: BENZONATATE
  12. LISINOPRIL [Concomitant]
     Active Substance: LISINOPRIL
  13. BUSPIRONE HCL [Concomitant]
     Active Substance: BUSPIRONE HYDROCHLORIDE
  14. DIPHENHYDRAMINE HYDROCHLORIDE [Concomitant]
     Active Substance: DIPHENHYDRAMINE HYDROCHLORIDE
  15. Lmx [Concomitant]
  16. PREGABALIN [Concomitant]
     Active Substance: PREGABALIN
  17. CETIRIZINE HCL [Concomitant]
     Active Substance: CETIRIZINE HYDROCHLORIDE
  18. FARXIGA [Concomitant]
     Active Substance: DAPAGLIFLOZIN PROPANEDIOL
  19. SYNTHROID [Concomitant]
     Active Substance: LEVOTHYROXINE SODIUM
  20. ONDANSETRON HYDROCHLORIDE [Concomitant]
     Active Substance: ONDANSETRON HYDROCHLORIDE
  21. LIDOCAINE [Concomitant]
     Active Substance: LIDOCAINE

REACTIONS (10)
  - Syncope [Unknown]
  - Pneumonia [Unknown]
  - Pain [Unknown]
  - Sinusitis [Recovered/Resolved]
  - Allergic sinusitis [Unknown]
  - Obstruction [Unknown]
  - Infusion site discharge [Unknown]
  - Ear infection [Unknown]
  - Dizziness [Unknown]
  - Fatigue [Unknown]
